FAERS Safety Report 5701603-4 (Version None)
Quarter: 2008Q2

REPORT INFORMATION
  Report Type: 
  Country: None (occurrence: None)
  Receive Date: 20080411
  Receipt Date: 20080404
  Transmission Date: 20081010
  Serious: Yes (Life-Threatening, Other)
  Sender: FDA-Public Use
  Company Number: JP-SANOFI-SYNTHELABO-F01200701650

PATIENT
  Sex: Male
  Weight: 50 kg

DRUGS (4)
  1. URSO 250 [Concomitant]
     Dosage: 300 MG
     Route: 048
     Dates: start: 20060905
  2. CLOPIDOGREL [Suspect]
     Indication: CEREBROVASCULAR DISORDER
     Route: 048
     Dates: start: 20070723, end: 20070914
  3. CLOPIDOGREL [Suspect]
     Route: 048
     Dates: start: 20071004
  4. NEOPHAGEN [Concomitant]
     Dosage: 3 TABLETS
     Route: 048
     Dates: start: 20060905

REACTIONS (1)
  - OESOPHAGEAL CARCINOMA [None]
